FAERS Safety Report 10271883 (Version 2)
Quarter: 2014Q3

REPORT INFORMATION
  Report Type: Spontaneous
  Country: GB (occurrence: GB)
  Receive Date: 20140702
  Receipt Date: 20140724
  Transmission Date: 20150326
  Serious: Yes (Disabling)
  Sender: FDA-Public Use
  Company Number: PHHY2014GB077411

PATIENT
  Age: 58 Year
  Sex: Female
  Weight: 83.46 kg

DRUGS (2)
  1. PARACODIN//DIHYDROCODEINE [Concomitant]
     Indication: MYALGIA
     Dosage: 1 DF, TID
  2. SERTRALINE [Suspect]
     Active Substance: SERTRALINE HYDROCHLORIDE
     Dosage: 50 MG, UNK
     Route: 048
     Dates: start: 20140610, end: 20140610

REACTIONS (8)
  - Pain [Not Recovered/Not Resolved]
  - Headache [Not Recovered/Not Resolved]
  - Vomiting projectile [Recovered/Resolved]
  - Malaise [Not Recovered/Not Resolved]
  - Disorientation [Not Recovered/Not Resolved]
  - Abdominal pain [Not Recovered/Not Resolved]
  - Flushing [Not Recovered/Not Resolved]
  - Confusional state [Not Recovered/Not Resolved]

NARRATIVE: CASE EVENT DATE: 20140610
